FAERS Safety Report 13776499 (Version 1)
Quarter: 2017Q3

REPORT INFORMATION
  Report Type: Spontaneous
  Country: AU (occurrence: AU)
  Receive Date: 20170721
  Receipt Date: 20170721
  Transmission Date: 20171127
  Serious: Yes (Other)
  Sender: FDA-Public Use
  Company Number: AU-PFIZER INC-2819493

PATIENT
  Age: 75 Year
  Sex: Female

DRUGS (2)
  1. PHENYTOIN. [Suspect]
     Active Substance: PHENYTOIN
     Indication: CONVULSION PROPHYLAXIS
     Dosage: 750 MG, UNK
  2. PHENYTOIN. [Suspect]
     Active Substance: PHENYTOIN
     Dosage: 300 MG, FREQ: 1 DAY; INTERVAL: 1

REACTIONS (6)
  - Cognitive disorder [Unknown]
  - Ataxia [Unknown]
  - Confusional state [Unknown]
  - Encephalopathy [Unknown]
  - Dysarthria [Unknown]
  - Nystagmus [Unknown]
